FAERS Safety Report 10044515 (Version 1)
Quarter: 2014Q1

REPORT INFORMATION
  Report Type: Spontaneous
  Country: IT (occurrence: IT)
  Receive Date: 20140328
  Receipt Date: 20140328
  Transmission Date: 20141002
  Serious: Yes (Other)
  Sender: FDA-Public Use
  Company Number: PHHY2014IT036115

PATIENT
  Age: 55 Year
  Sex: Female

DRUGS (12)
  1. CAPECITABINE [Suspect]
     Indication: INVASIVE DUCTAL BREAST CARCINOMA
     Dosage: 2000 MG/M2, UNK
  2. CAPECITABINE [Suspect]
     Indication: BREAST CANCER METASTATIC
  3. EPIRUBICIN [Suspect]
     Indication: INVASIVE DUCTAL BREAST CARCINOMA
     Dosage: 90 MG/M2, UNK
  4. PACLITAXEL [Suspect]
     Indication: INVASIVE DUCTAL BREAST CARCINOMA
     Dosage: 175 MG/M2, UNK
  5. DOCETAXEL [Suspect]
     Indication: INVASIVE DUCTAL BREAST CARCINOMA
     Dosage: 75 MG/M2, UNK
  6. DOCETAXEL [Suspect]
     Indication: BREAST CANCER METASTATIC
  7. LETROZOLE [Suspect]
     Indication: INVASIVE DUCTAL BREAST CARCINOMA
  8. CYCLOPHOSPHAMIDE [Suspect]
     Indication: INVASIVE DUCTAL BREAST CARCINOMA
     Dosage: 600 MG/M2, UNK
  9. TRASTUZUMAB [Suspect]
     Indication: INVASIVE DUCTAL BREAST CARCINOMA
     Dosage: 8 MG/KG, EVERY 3 WEEKS
  10. TRASTUZUMAB [Suspect]
     Indication: BREAST CANCER METASTATIC
     Dosage: 6 MG/KG, EVERY 3 WEEKS
  11. LAPATINIB [Suspect]
     Indication: INVASIVE DUCTAL BREAST CARCINOMA
     Dosage: 1250 MG, PER DAY
  12. LAPATINIB [Suspect]
     Indication: BREAST CANCER METASTATIC

REACTIONS (14)
  - Oedema peripheral [Recovered/Resolved]
  - Decreased appetite [Recovering/Resolving]
  - Fatigue [Recovering/Resolving]
  - Pleural effusion [Recovered/Resolved]
  - Osteosclerosis [Unknown]
  - Bone lesion [Unknown]
  - Dyspnoea [Recovered/Resolved]
  - Cough [Recovered/Resolved]
  - Breast cancer metastatic [Recovered/Resolved]
  - Lymphangiosis carcinomatosa [Recovered/Resolved]
  - Metastases to central nervous system [Unknown]
  - Metastases to lung [Unknown]
  - Malignant neoplasm progression [Unknown]
  - Diarrhoea [Unknown]
